FAERS Safety Report 8168971-8 (Version None)
Quarter: 2012Q1

REPORT INFORMATION
  Report Type: 
  Country: None (occurrence: None)
  Receive Date: 20120227
  Receipt Date: 20120220
  Transmission Date: 20120608
  Serious: Yes (Hospitalization)
  Sender: FDA-Public Use
  Company Number: FR-PFIZER INC-2012044164

PATIENT
  Age: 72 Year
  Sex: Female

DRUGS (9)
  1. CELEBREX [Suspect]
     Indication: ARTHRITIS
  2. LEVOTHYROXINE SODIUM [Concomitant]
     Dosage: 100 UG, UNK
  3. ACETAMINOPHEN W/ PROPOXYPHENE HCL [Suspect]
     Dosage: 2 DF, 1X/DAY
     Route: 048
  4. LEVOTHYROXINE SODIUM [Concomitant]
     Dosage: 125 UG, UNK
  5. METEOSPASMYL [Concomitant]
     Dosage: 1 DF, AS NEEDED
  6. ATORVASTATIN [Suspect]
     Dosage: 20 MG, 1X/DAY
     Route: 048
  7. ACETAMINOPHEN [Suspect]
     Dosage: 1 G, 2X/DAY
  8. CHONDROSULF [Suspect]
     Dosage: 1 DF, 3X/DAY
     Route: 048
  9. CALCIUM CARBONATE [Concomitant]
     Route: 048

REACTIONS (9)
  - HEPATIC STEATOSIS [None]
  - HEART RATE DECREASED [None]
  - CYTOLYTIC HEPATITIS [None]
  - BILIARY CYST [None]
  - ANTINUCLEAR ANTIBODY POSITIVE [None]
  - ANGIOLIPOMA [None]
  - CYST [None]
  - HEPATIC NEOPLASM [None]
  - LIVER INJURY [None]
